FAERS Safety Report 5266656-9 (Version None)
Quarter: 2007Q1

REPORT INFORMATION
  Report Type: 
  Country: None (occurrence: None)
  Receive Date: 20070312
  Receipt Date: 20070227
  Transmission Date: 20070707
  Serious: Yes (Life-Threatening)
  Sender: FDA-Public Use
  Company Number: 232113

PATIENT
  Age: 57 Year
  Sex: Male
  Weight: 80 kg

DRUGS (2)
  1. MABTHERA (RITUXIMAB) CONC FOR SOLUTIO0N FOR INFUSION [Suspect]
     Indication: RHEUMATOID ARTHRITIS
     Dosage: SEE IMAGE
     Dates: start: 20051229, end: 20051229
  2. MABTHERA (RITUXIMAB) CONC FOR SOLUTIO0N FOR INFUSION [Suspect]
     Indication: RHEUMATOID ARTHRITIS
     Dosage: SEE IMAGE
     Dates: start: 20060113, end: 20060113

REACTIONS (2)
  - PROSTATE CANCER [None]
  - TRANSITIONAL CELL CARCINOMA [None]
